FAERS Safety Report 5370983-4 (Version None)
Quarter: 2007Q2

REPORT INFORMATION
  Report Type: 
  Country: None (occurrence: None)
  Receive Date: 20070626
  Receipt Date: 20070614
  Transmission Date: 20071010
  Serious: Yes (Other)
  Sender: FDA-Public Use
  Company Number: JP-PFIZER INC-2007042514

PATIENT
  Sex: Female
  Weight: 13 kg

DRUGS (4)
  1. SOLU-MEDROL [Suspect]
     Indication: KAWASAKI'S DISEASE
     Route: 042
     Dates: start: 20070518, end: 20070520
  2. HEPARIN SODIUM [Concomitant]
     Indication: KAWASAKI'S DISEASE
     Dosage: TEXT:2400 UNITS/DAY
     Route: 042
     Dates: start: 20070518, end: 20070520
  3. IMMUNE GLOBULIN INTRAVENOUS (HUMAN) [Concomitant]
     Dosage: DAILY DOSE:27.5GRAM
     Route: 042
     Dates: start: 20070518, end: 20070524
  4. BUFFERIN [Concomitant]
     Dosage: DAILY DOSE:121.5GRAM
     Route: 048

REACTIONS (2)
  - MOROSE [None]
  - RESTLESSNESS [None]
